FAERS Safety Report 7882604-7 (Version None)
Quarter: 2011Q4

REPORT INFORMATION
  Report Type: 
  Country: None (occurrence: None)
  Receive Date: 20111101
  Receipt Date: 20110616
  Transmission Date: 20120403
  Serious: No
  Sender: FDA-Public Use
  Company Number: US-AMGEN-USASP2011014339

PATIENT
  Age: 64 Year
  Sex: Female
  Weight: 86.757 kg

DRUGS (18)
  1. SINGULAIR [Concomitant]
     Dosage: 10 MG, QD
  2. POTASSIUM CHLORIDE [Concomitant]
     Dosage: 10 MEQ, PRN
  3. VENTOLIN HFA [Concomitant]
     Dosage: UNK UNK, PRN
  4. KETOROLAC TROMETHAMINE [Concomitant]
     Dosage: 30 MG, UNK
  5. LOSARTAN POTASSIUM [Concomitant]
     Dosage: 100 MG, QD
  6. MELOXICAM [Concomitant]
     Dosage: 15 MG, QD
  7. NITROFURANTOIN (MONOHYDRATE/MACROCRYSTALS) [Concomitant]
     Dosage: 100 MG, BID
  8. ENBREL [Suspect]
     Indication: PSORIASIS
     Dosage: 50 MG, 2 TIMES/WK
     Dates: start: 20091028
  9. LEVOTHYROXINE SODIUM [Concomitant]
     Dosage: 100 A?G, QD
  10. SYMBICORT [Concomitant]
     Dosage: UNK
  11. PROMETHAZINE - CODEINE             /01129901/ [Concomitant]
     Dosage: UNK UNK, PRN
  12. CARISOPRODOL [Concomitant]
     Dosage: 350 MG, BID
  13. ULORIC [Concomitant]
     Dosage: 80 MG, QD
  14. PREDNISOLONE [Concomitant]
  15. VITAMIN D [Concomitant]
     Dosage: 5000 UNIT, QWK
  16. FUROSEMIDE [Concomitant]
     Dosage: 20 MG, PRN
  17. ESTRADIOL [Concomitant]
  18. OXYCODONE AND ACETAMINOPHEN [Concomitant]
     Dosage: UNK UNK, PRN

REACTIONS (27)
  - NAUSEA [None]
  - INTERVERTEBRAL DISC DEGENERATION [None]
  - ARTHRALGIA [None]
  - ALOPECIA [None]
  - PAIN IN EXTREMITY [None]
  - PARAESTHESIA [None]
  - BALANCE DISORDER [None]
  - HYPOAESTHESIA [None]
  - FEELING ABNORMAL [None]
  - NECK PAIN [None]
  - VISION BLURRED [None]
  - COUGH [None]
  - MYALGIA [None]
  - BACK PAIN [None]
  - POLLAKIURIA [None]
  - MUSCULOSKELETAL PAIN [None]
  - OSTEOARTHRITIS [None]
  - WHEEZING [None]
  - DYSPEPSIA [None]
  - MUSCLE SPASMS [None]
  - SPINAL OSTEOARTHRITIS [None]
  - DYSPNOEA [None]
  - AMNESIA [None]
  - DIARRHOEA [None]
  - INJECTION SITE PAIN [None]
  - CERVICOBRACHIAL SYNDROME [None]
  - JOINT SWELLING [None]
